FAERS Safety Report 8860960 (Version 1)
Quarter: 2012Q4

REPORT INFORMATION
  Report Type: Spontaneous
  Country: DK (occurrence: None)
  Receive Date: 20121023
  Receipt Date: 20121023
  Transmission Date: 20130627
  Serious: Yes (Other)
  Sender: FDA-Public Use
  Company Number: 2012MA012518

PATIENT
  Age: 30 Year
  Sex: Female

DRUGS (1)
  1. PROPRANOLOL [Suspect]

REACTIONS (2)
  - Vascular rupture [None]
  - Haemorrhage subcutaneous [None]
